FAERS Safety Report 7882233-5 (Version None)
Quarter: 2011Q4

REPORT INFORMATION
  Report Type: 
  Country: None (occurrence: None)
  Receive Date: 20111101
  Receipt Date: 20110613
  Transmission Date: 20120403
  Serious: No
  Sender: FDA-Public Use
  Company Number: US-AMGEN-USASP2010010584

PATIENT
  Age: 35 Year
  Sex: Female

DRUGS (2)
  1. ENBREL [Suspect]
     Dosage: 50 MG, QWK
     Dates: start: 20101213
  2. ENBREL [Suspect]
     Indication: HIDRADENITIS
     Dosage: 50 MG, 2 TIMES/WK
     Dates: start: 20101210

REACTIONS (10)
  - DYSPNOEA [None]
  - INJECTION SITE PAIN [None]
  - INJECTION SITE REACTION [None]
  - INJECTION SITE INDURATION [None]
  - INJECTION SITE HAEMATOMA [None]
  - FATIGUE [None]
  - INJECTION SITE SWELLING [None]
  - MUSCULAR WEAKNESS [None]
  - INJECTION SITE ERYTHEMA [None]
  - INJECTION SITE WARMTH [None]
